FAERS Safety Report 9759663 (Version 1)
Quarter: 2013Q4

REPORT INFORMATION
  Report Type: Spontaneous
  Country: US (occurrence: US)
  Receive Date: 20131216
  Receipt Date: 20131216
  Transmission Date: 20140711
  Serious: No
  Sender: FDA-Public Use
  Company Number: US-GILEAD-2010-0028604

PATIENT
  Sex: Female
  Weight: 104.33 kg

DRUGS (15)
  1. LETAIRIS [Suspect]
     Indication: PULMONARY ARTERIAL HYPERTENSION
     Route: 048
     Dates: start: 20100224, end: 20100405
  2. SINGULAIR [Concomitant]
  3. CELEBREX [Concomitant]
  4. PAXIL CR [Concomitant]
  5. LASIX [Concomitant]
  6. METOPROLOL [Concomitant]
  7. LIPITOR [Concomitant]
  8. WELLBUTRIN [Concomitant]
  9. PULMICORT [Concomitant]
  10. ALBUTEROL [Concomitant]
  11. SPIRIVA [Concomitant]
  12. LUNESTA [Concomitant]
  13. ASPIRIN [Concomitant]
  14. POTASSIUM CHLORIDE [Concomitant]
  15. AZOR [Concomitant]

REACTIONS (3)
  - Feeling hot [Unknown]
  - Pruritus [Unknown]
  - Local swelling [Unknown]
